FAERS Safety Report 10247288 (Version 1)
Quarter: 2014Q2

REPORT INFORMATION
  Report Type: Spontaneous
  Country: CN (occurrence: CN)
  Receive Date: 20140619
  Receipt Date: 20140619
  Transmission Date: 20141212
  Serious: Yes (Hospitalization, Other)
  Sender: FDA-Public Use
  Company Number: CN-GLAXOSMITHKLINE-B1005274A

PATIENT
  Sex: Male
  Weight: 70 kg

DRUGS (2)
  1. HEPTODIN [Suspect]
     Indication: HEPATITIS B
     Dosage: 100MG PER DAY
     Route: 048
     Dates: start: 20111009, end: 20130711
  2. HEPSERA [Concomitant]
     Indication: HEPATITIS B
     Dosage: 10MG PER DAY
     Route: 048
     Dates: start: 20121011, end: 20130711

REACTIONS (22)
  - Acute hepatic failure [Not Recovered/Not Resolved]
  - Decreased appetite [Not Recovered/Not Resolved]
  - Hypophagia [Not Recovered/Not Resolved]
  - Fatigue [Not Recovered/Not Resolved]
  - Hepatic cirrhosis [Not Recovered/Not Resolved]
  - Chronic hepatitis B [Not Recovered/Not Resolved]
  - Jaundice [Not Recovered/Not Resolved]
  - Hepatic atrophy [Not Recovered/Not Resolved]
  - Chronic hepatic failure [Not Recovered/Not Resolved]
  - Nasopharyngitis [Not Recovered/Not Resolved]
  - Coma hepatic [Not Recovered/Not Resolved]
  - Ammonia increased [Not Recovered/Not Resolved]
  - Neutrophil count increased [Not Recovered/Not Resolved]
  - Infection [Not Recovered/Not Resolved]
  - Candida infection [Not Recovered/Not Resolved]
  - Hepatic encephalopathy [Not Recovered/Not Resolved]
  - Blood bilirubin increased [Not Recovered/Not Resolved]
  - Coagulation factor decreased [Not Recovered/Not Resolved]
  - Platelet count decreased [Not Recovered/Not Resolved]
  - Viral mutation identified [Not Recovered/Not Resolved]
  - Drug ineffective [Not Recovered/Not Resolved]
  - Concomitant disease aggravated [Not Recovered/Not Resolved]
